FAERS Safety Report 16694495 (Version 1)
Quarter: 2019Q3

REPORT INFORMATION
  Report Type: Spontaneous
  Country: US (occurrence: US)
  Receive Date: 20190812
  Receipt Date: 20190812
  Transmission Date: 20191004
  Serious: Yes (Life-Threatening, Hospitalization, Disabling)
  Sender: FDA-Public Use
  Company Number: US-NOVOPROD-677450

PATIENT
  Age: 72 Year
  Sex: Male

DRUGS (1)
  1. TRESIBA [Suspect]
     Active Substance: INSULIN DEGLUDEC
     Indication: PRODUCT USED FOR UNKNOWN INDICATION
     Dosage: 22 IU
     Route: 058
     Dates: start: 2017

REACTIONS (6)
  - Fall [Unknown]
  - Hip fracture [Not Recovered/Not Resolved]
  - Weight increased [Unknown]
  - Peripheral swelling [Not Recovered/Not Resolved]
  - Myocardial infarction [Unknown]
  - Pulmonary embolism [Unknown]

NARRATIVE: CASE EVENT DATE: 2017
